FAERS Safety Report 5745610-4 (Version None)
Quarter: 2008Q2

REPORT INFORMATION
  Report Type: 
  Country: None (occurrence: None)
  Receive Date: 20080519
  Receipt Date: 20080206
  Transmission Date: 20081010
  Serious: No
  Sender: FDA-Public Use
  Company Number: TPA2008A00167

PATIENT
  Age: 67 Year
  Sex: Male
  Weight: 63.5036 kg

DRUGS (6)
  1. ROZEREM [Suspect]
     Indication: DRUG WITHDRAWAL MAINTENANCE THERAPY
     Dosage: 8 MG, QHS, PER ORAL
     Route: 048
     Dates: start: 20080205, end: 20080206
  2. ROZEREM [Suspect]
     Indication: INSOMNIA
     Dosage: 8 MG, QHS, PER ORAL
     Route: 048
     Dates: start: 20080205, end: 20080206
  3. ALPRAZOLAM [Suspect]
     Indication: SLEEP DISORDER
     Dosage: 0.5 MG, 1 TO 5 TABS QD AS REQUIRED, PER ORAL
     Route: 048
     Dates: start: 20040701
  4. GABAPENTIN [Suspect]
     Indication: NERVOUS SYSTEM DISORDER
     Dosage: 600 MG, 1 TO 3 TABS QD AS REQUIRED, PER ORAL
     Route: 048
     Dates: start: 19980101
  5. THYROID TAB [Concomitant]
  6. BUSPAR [Concomitant]

REACTIONS (5)
  - ANXIETY [None]
  - COELIAC DISEASE [None]
  - CRYING [None]
  - FEELING JITTERY [None]
  - FEELING OF DESPAIR [None]
